FAERS Safety Report 25524342 (Version 2)
Quarter: 2025Q3

REPORT INFORMATION
  Report Type: Spontaneous
  Country: US (occurrence: US)
  Receive Date: 20250707
  Receipt Date: 20250709
  Transmission Date: 20251021
  Serious: Yes (Life-Threatening, Other)
  Sender: PFIZER
  Company Number: US-MLMSERVICE-20250626-PI551585-00132-1

PATIENT
  Sex: Female

DRUGS (2)
  1. EPINEPHRINE [Suspect]
     Active Substance: EPINEPHRINE
     Indication: Anaphylactic reaction
     Route: 042
  2. EPINEPHRINE [Suspect]
     Active Substance: EPINEPHRINE
     Indication: Hypotension

REACTIONS (1)
  - Drug ineffective [Recovered/Resolved]
